FAERS Safety Report 8847239 (Version 2)
Quarter: 2012Q4

REPORT INFORMATION
  Report Type: 
  Country: FR (occurrence: FR)
  Receive Date: 20121018
  Receipt Date: 20121030
  Transmission Date: 20130627
  Serious: Yes (Hospitalization)
  Sender: FDA-Public Use
  Company Number: PHHY2012FR091074

PATIENT
  Age: 39 Year
  Sex: Female

DRUGS (3)
  1. LEELOO [Suspect]
     Indication: CONTRACEPTION
     Dosage: 1 DF, QD
     Route: 048
     Dates: start: 20120424, end: 201208
  2. LEVOTHYROX [Concomitant]
     Indication: HYPOTHYROIDISM
     Dosage: 1 DF, QD
     Route: 048
     Dates: start: 2011
  3. PARIET [Concomitant]

REACTIONS (1)
  - Pelvic venous thrombosis [Recovered/Resolved]
